FAERS Safety Report 20037991 (Version 2)
Quarter: 2021Q4

REPORT INFORMATION
  Report Type: Spontaneous
  Country: US (occurrence: US)
  Receive Date: 20211105
  Receipt Date: 20211118
  Transmission Date: 20220304
  Serious: No
  Sender: FDA-Public Use
  Company Number: US-009507513-2110USA006282

PATIENT
  Age: 10 Year
  Sex: Female
  Weight: 31 kg

DRUGS (26)
  1. NOXAFIL [Interacting]
     Active Substance: POSACONAZOLE
     Indication: Mucormycosis
     Dosage: 300 MILLIGRAM, BID; FOR THE FIRST DAY
     Route: 048
  2. NOXAFIL [Interacting]
     Active Substance: POSACONAZOLE
     Dosage: 300 MILLIGRAM, QD
     Route: 048
  3. NOXAFIL [Interacting]
     Active Substance: POSACONAZOLE
     Dosage: 200 MILLIGRAM, QD
     Route: 048
  4. TACROLIMUS [Interacting]
     Active Substance: TACROLIMUS
     Dosage: 2.5 MILLIGRAM, BID
     Route: 048
  5. TACROLIMUS [Interacting]
     Active Substance: TACROLIMUS
     Dosage: 1.5 MILLIGRAM, BID
     Route: 048
  6. TACROLIMUS [Interacting]
     Active Substance: TACROLIMUS
     Dosage: 1 MILLIGRAM, BID
     Route: 048
  7. TACROLIMUS [Interacting]
     Active Substance: TACROLIMUS
     Dosage: 0.5 MILLIGRAM, QD
     Route: 048
  8. TACROLIMUS [Interacting]
     Active Substance: TACROLIMUS
     Dosage: 0.5 MILLIGRAM, BID
     Route: 048
  9. TACROLIMUS [Interacting]
     Active Substance: TACROLIMUS
     Dosage: 1 MILLIGRAM, QD
     Route: 048
  10. TACROLIMUS [Interacting]
     Active Substance: TACROLIMUS
     Dosage: 0.5 MILLIGRAM, BID
     Route: 048
  11. VITAMIN D3 [Concomitant]
     Active Substance: CHOLECALCIFEROL
  12. VITAMIN B6 [Concomitant]
     Active Substance: PYRIDOXINE HYDROCHLORIDE
  13. FERROUS SULFATE [Concomitant]
     Active Substance: FERROUS SULFATE
  14. MAGNESIUM OXIDE [Concomitant]
     Active Substance: MAGNESIUM OXIDE
  15. MONTELUKAST [Concomitant]
     Active Substance: MONTELUKAST SODIUM
  16. CETIRIZINE [Concomitant]
     Active Substance: CETIRIZINE HYDROCHLORIDE
  17. PROVENTIL [Concomitant]
     Active Substance: ALBUTEROL
  18. SODIUM CITRATE [Concomitant]
     Active Substance: SODIUM CITRATE
  19. ASPIRIN [Concomitant]
     Active Substance: ASPIRIN
  20. INSULIN GLARGINE [Concomitant]
     Active Substance: INSULIN GLARGINE
  21. AMLODIPINE [Concomitant]
     Active Substance: AMLODIPINE BESYLATE
  22. RANITIDINE [Concomitant]
     Active Substance: RANITIDINE
  23. LACTULOSE [Concomitant]
     Active Substance: LACTULOSE
     Indication: Gastrointestinal motility disorder
  24. RIFAXIMIN [Concomitant]
     Active Substance: RIFAXIMIN
     Indication: Gastrointestinal bacterial overgrowth
  25. AMPHOTERICIN B [Concomitant]
     Active Substance: AMPHOTERICIN B
  26. CANCIDAS [Concomitant]
     Active Substance: CASPOFUNGIN ACETATE
     Indication: Mucormycosis

REACTIONS (4)
  - Transaminases increased [Recovering/Resolving]
  - Drug level above therapeutic [Recovered/Resolved]
  - Off label use [Unknown]
  - Labelled drug-drug interaction issue [Unknown]
